FAERS Safety Report 19031384 (Version 1)
Quarter: 2021Q1

REPORT INFORMATION
  Report Type: Spontaneous
  Country: US (occurrence: US)
  Receive Date: 20210319
  Receipt Date: 20210319
  Transmission Date: 20210420
  Serious: Yes (Life-Threatening, Disabling)
  Sender: FDA-Public Use
  Company Number: US-AMERICAN REGENT INC-2021000669

PATIENT
  Sex: Female

DRUGS (1)
  1. INJECTAFER [Suspect]
     Active Substance: FERRIC CARBOXYMALTOSE
     Indication: IRON DEFICIENCY ANAEMIA
     Dosage: MULTIPLE INJECTIONS BETWEEN 2016 AND 2019
     Dates: start: 2016, end: 2019

REACTIONS (7)
  - Pain [Not Recovered/Not Resolved]
  - Hypophosphataemia [Not Recovered/Not Resolved]
  - Anhedonia [Not Recovered/Not Resolved]
  - Anxiety [Not Recovered/Not Resolved]
  - Product quality issue [Unknown]
  - Emotional distress [Not Recovered/Not Resolved]
  - Arrhythmia [Not Recovered/Not Resolved]
